FAERS Safety Report 7090267-6 (Version None)
Quarter: 2010Q4

REPORT INFORMATION
  Report Type: 
  Country: None (occurrence: None)
  Receive Date: 20101105
  Receipt Date: 20101105
  Transmission Date: 20110411
  Serious: Yes (Hospitalization)
  Sender: FDA-Public Use
  Company Number: None

PATIENT
  Sex: Female
  Weight: 3.045 kg

DRUGS (1)
  1. NALBUPHINE [Suspect]
     Indication: PREMATURE LABOUR
     Dosage: 10 MG X1 IV
     Route: 042
     Dates: start: 20101010, end: 20101010

REACTIONS (5)
  - INFANTILE APNOEIC ATTACK [None]
  - MATERNAL DRUGS AFFECTING FOETUS [None]
  - OXYGEN SATURATION DECREASED [None]
  - PREMATURE BABY [None]
  - SKIN DISCOLOURATION [None]
